FAERS Safety Report 8375909-7 (Version None)
Quarter: 2012Q2

REPORT INFORMATION
  Report Type: 
  Country: None (occurrence: None)
  Receive Date: 20120522
  Receipt Date: 20120514
  Transmission Date: 20120825
  Serious: Yes (Life-Threatening, Other)
  Sender: FDA-Public Use
  Company Number: CN-ASTRAZENECA-2012SE30659

PATIENT
  Age: 65 Year
  Sex: Male

DRUGS (7)
  1. PROPOFOL [Suspect]
     Indication: ANAESTHESIA
  2. ETOMIDATE [Suspect]
  3. SUFENTANIL CITRATE [Suspect]
  4. MIDAZOLAM [Suspect]
  5. HETASTARCH IN SODIUM CHLORIDE [Suspect]
  6. FENTANYL-100 [Suspect]
  7. VECURONIUM BROMIDE [Suspect]

REACTIONS (2)
  - ANAPHYLACTIC SHOCK [None]
  - HYPOTENSION [None]
